FAERS Safety Report 16238146 (Version 3)
Quarter: 2019Q2

REPORT INFORMATION
  Report Type: Spontaneous
  Country: US (occurrence: US)
  Receive Date: 20190425
  Receipt Date: 20190503
  Transmission Date: 20190711
  Serious: No
  Sender: FDA-Public Use
  Company Number: US-NXDC-GLE-0015-2019

PATIENT
  Age: 62 Year
  Sex: Male
  Weight: 88.5 kg

DRUGS (1)
  1. GLEOLAN [Suspect]
     Active Substance: AMINOLEVULINIC ACID HYDROCHLORIDE
     Indication: GLIOMA
     Dates: start: 20190326, end: 20190326

REACTIONS (1)
  - Photosensitivity reaction [Recovered/Resolved]

NARRATIVE: CASE EVENT DATE: 20190326
